FAERS Safety Report 17016886 (Version 1)
Quarter: 2019Q4

REPORT INFORMATION
  Report Type: Spontaneous
  Country: CA (occurrence: CA)
  Receive Date: 20191111
  Receipt Date: 20191111
  Transmission Date: 20200122
  Serious: Yes (Other)
  Sender: FDA-Public Use
  Company Number: CA-PFIZER INC-2019482815

PATIENT

DRUGS (2)
  1. OLIMEL [Suspect]
     Active Substance: AMINO ACIDS\DEXTROSE\SOYBEAN OIL
     Indication: PARENTERAL NUTRITION
     Dosage: UNK
  2. PROPOFOL. [Suspect]
     Active Substance: PROPOFOL
     Dosage: UNK

REACTIONS (2)
  - Blood triglycerides increased [Unknown]
  - General physical health deterioration [Unknown]
